FAERS Safety Report 4715648-4 (Version None)
Quarter: 2005Q3

REPORT INFORMATION
  Report Type: 
  Country: None (occurrence: None)
  Receive Date: 20050713
  Receipt Date: 20050624
  Transmission Date: 20060218
  Serious: Yes (Other)
  Sender: FDA-Public Use
  Company Number: L05-NOR-02371-02

PATIENT
  Age: 79 Year
  Sex: Female

DRUGS (2)
  1. LEVOTHYROXINE SODIUM [Suspect]
     Dosage: 150 MCG QD
  2. CIPROFLOXACIN [Suspect]
     Indication: WOUND INFECTION
     Dosage: 500 MG BID PO
     Route: 048

REACTIONS (4)
  - DRUG INTERACTION [None]
  - HYPOTHYROIDISM [None]
  - LEG AMPUTATION [None]
  - WOUND INFECTION [None]
